FAERS Safety Report 19482877 (Version 4)
Quarter: 2023Q1

REPORT INFORMATION
  Report Type: Report from Study
  Country: AR (occurrence: AR)
  Receive Date: 20210701
  Receipt Date: 20230330
  Transmission Date: 20230418
  Serious: Yes (Other)
  Sender: FDA-Public Use
  Company Number: AR-TAKEDA-2021TUS032713

PATIENT
  Sex: Male
  Weight: 47 kg

DRUGS (28)
  1. TEDUGLUTIDE [Suspect]
     Active Substance: TEDUGLUTIDE
     Indication: Short-bowel syndrome
     Dosage: 0.5 MILLIGRAM/KILOGRAM, QD
     Route: 058
     Dates: start: 201809, end: 20210515
  2. TEDUGLUTIDE [Suspect]
     Active Substance: TEDUGLUTIDE
     Indication: Short-bowel syndrome
     Dosage: 0.5 MILLIGRAM/KILOGRAM, QD
     Route: 058
     Dates: start: 201809, end: 20210515
  3. TEDUGLUTIDE [Suspect]
     Active Substance: TEDUGLUTIDE
     Indication: Short-bowel syndrome
     Dosage: 0.5 MILLIGRAM/KILOGRAM, QD
     Route: 058
     Dates: start: 201809, end: 20210515
  4. TEDUGLUTIDE [Suspect]
     Active Substance: TEDUGLUTIDE
     Indication: Short-bowel syndrome
     Dosage: 0.5 MILLIGRAM/KILOGRAM, QD
     Route: 058
     Dates: start: 201809, end: 20210515
  5. TEDUGLUTIDE [Suspect]
     Active Substance: TEDUGLUTIDE
     Dosage: UNK
     Route: 065
     Dates: start: 201809, end: 20210516
  6. TEDUGLUTIDE [Suspect]
     Active Substance: TEDUGLUTIDE
     Dosage: UNK
     Route: 065
     Dates: start: 201809, end: 20210516
  7. TEDUGLUTIDE [Suspect]
     Active Substance: TEDUGLUTIDE
     Dosage: UNK
     Route: 065
     Dates: start: 201809, end: 20210516
  8. TEDUGLUTIDE [Suspect]
     Active Substance: TEDUGLUTIDE
     Dosage: UNK
     Route: 065
     Dates: start: 201809, end: 20210516
  9. TEDUGLUTIDE [Suspect]
     Active Substance: TEDUGLUTIDE
     Dosage: 0.05 MILLIGRAM/KILOGRAM, QD
     Route: 065
     Dates: start: 20180911, end: 20210516
  10. TEDUGLUTIDE [Suspect]
     Active Substance: TEDUGLUTIDE
     Dosage: 0.05 MILLIGRAM/KILOGRAM, QD
     Route: 065
     Dates: start: 20180911, end: 20210516
  11. TEDUGLUTIDE [Suspect]
     Active Substance: TEDUGLUTIDE
     Dosage: 0.05 MILLIGRAM/KILOGRAM, QD
     Route: 065
     Dates: start: 20180911, end: 20210516
  12. TEDUGLUTIDE [Suspect]
     Active Substance: TEDUGLUTIDE
     Dosage: 0.05 MILLIGRAM/KILOGRAM, QD
     Route: 065
     Dates: start: 20180911, end: 20210516
  13. TEDUGLUTIDE [Suspect]
     Active Substance: TEDUGLUTIDE
     Dosage: 0.05 MILLIGRAM/KILOGRAM
     Route: 058
     Dates: start: 20180911
  14. TEDUGLUTIDE [Suspect]
     Active Substance: TEDUGLUTIDE
     Dosage: 0.05 MILLIGRAM/KILOGRAM
     Route: 058
     Dates: start: 20180911
  15. TEDUGLUTIDE [Suspect]
     Active Substance: TEDUGLUTIDE
     Dosage: 0.05 MILLIGRAM/KILOGRAM
     Route: 058
     Dates: start: 20180911
  16. TEDUGLUTIDE [Suspect]
     Active Substance: TEDUGLUTIDE
     Dosage: 0.05 MILLIGRAM/KILOGRAM
     Route: 058
     Dates: start: 20180911
  17. TEDUGLUTIDE [Suspect]
     Active Substance: TEDUGLUTIDE
     Dosage: UNK
     Route: 058
     Dates: start: 20210826
  18. TEDUGLUTIDE [Suspect]
     Active Substance: TEDUGLUTIDE
     Dosage: UNK
     Route: 058
     Dates: start: 20210826
  19. TEDUGLUTIDE [Suspect]
     Active Substance: TEDUGLUTIDE
     Dosage: UNK
     Route: 058
     Dates: start: 20210826
  20. TEDUGLUTIDE [Suspect]
     Active Substance: TEDUGLUTIDE
     Dosage: UNK
     Route: 058
     Dates: start: 20210826
  21. SALINE [Concomitant]
     Active Substance: SODIUM CHLORIDE
     Indication: Nutritional supplementation
     Dosage: UNK UNK, QD
  22. LOPERAMIDE [Concomitant]
     Active Substance: LOPERAMIDE
     Dosage: 4 MILLIGRAM, 1/WEEK
     Route: 048
  23. LOPERAMIDE [Concomitant]
     Active Substance: LOPERAMIDE
     Dosage: 4 MILLIGRAM, Q8HR
     Route: 065
  24. ASCORBIC ACID\MINERALS\VITAMINS [Concomitant]
     Active Substance: ASCORBIC ACID\MINERALS\VITAMINS
     Indication: Vitamin supplementation
     Dosage: UNK
     Route: 048
  25. ZINC SULFATE [Concomitant]
     Active Substance: ZINC SULFATE
     Dosage: 10 MILLIGRAM, QD
     Route: 048
  26. VITAMIN D [Concomitant]
     Active Substance: VITAMIN D NOS
     Dosage: UNK, QD
     Route: 048
  27. SODIUM BICARBONATE [Concomitant]
     Active Substance: SODIUM BICARBONATE
     Dosage: 4 GRAM, QD
     Route: 048
  28. SODIUM BICARBONATE [Concomitant]
     Active Substance: SODIUM BICARBONATE
     Dosage: 1 GRAM, Q8HR
     Route: 065

REACTIONS (10)
  - Pyelocaliectasis [Unknown]
  - Cholecystitis chronic [Unknown]
  - Cholesterosis [Unknown]
  - Malabsorption [Unknown]
  - Weight decreased [Recovered/Resolved]
  - Discouragement [Recovered/Resolved]
  - Hepatic steatosis [Unknown]
  - Intestinal dilatation [Unknown]
  - Abdominal pain [Recovered/Resolved with Sequelae]
  - Decreased appetite [Recovered/Resolved]

NARRATIVE: CASE EVENT DATE: 20190101
